FAERS Safety Report 8433852-9 (Version None)
Quarter: 2012Q2

REPORT INFORMATION
  Report Type: 
  Country: None (occurrence: None)
  Receive Date: 20120613
  Receipt Date: 20120608
  Transmission Date: 20120825
  Serious: No
  Sender: FDA-Public Use
  Company Number: US-BAYER-2012-058407

PATIENT

DRUGS (2)
  1. ACETAMINOPHEN [Concomitant]
  2. ALEVE (CAPLET) [Suspect]
     Dosage: UNK
     Route: 048
     Dates: start: 20120608

REACTIONS (1)
  - DRUG INEFFECTIVE [None]
